FAERS Safety Report 4588150-0 (Version None)
Quarter: 2005Q1

REPORT INFORMATION
  Report Type: 
  Country: None (occurrence: None)
  Receive Date: 20050221
  Receipt Date: 20040115
  Transmission Date: 20050727
  Serious: Yes (Death, Hospitalization)
  Sender: FDA-Public Use
  Company Number: PHHO2004JP01021

PATIENT
  Age: 83 Year
  Sex: Female
  Weight: 60 kg

DRUGS (4)
  1. NIVADIL [Suspect]
     Indication: HYPERTENSION
     Dosage: UNK, UNK
     Route: 048
     Dates: start: 20021117
  2. BUFFERIN [Concomitant]
     Indication: ANGINA PECTORIS
     Dosage: 81MG DAILY DOSE
     Route: 048
     Dates: start: 20010512
  3. EPADEL [Concomitant]
     Indication: HYPERCHOLESTEROLAEMIA
     Dosage: 1.2G DAILY DOSE
     Route: 048
     Dates: start: 20030111
  4. DIOVAN [Suspect]
     Indication: HYPERTENSION
     Dosage: UNK, UNK
     Route: 048
     Dates: start: 20021117, end: 20040627

REACTIONS (5)
  - CEREBRAL INFARCTION [None]
  - CEREBRAL THROMBOSIS [None]
  - DEPRESSED LEVEL OF CONSCIOUSNESS [None]
  - DYSARTHRIA [None]
  - FACIAL PALSY [None]
